FAERS Safety Report 8200313-1 (Version None)
Quarter: 2012Q1

REPORT INFORMATION
  Report Type: 
  Country: None (occurrence: None)
  Receive Date: 20120309
  Receipt Date: 20120309
  Transmission Date: 20120608
  Serious: Yes (Disabling)
  Sender: FDA-Public Use
  Company Number: None

PATIENT
  Sex: Male
  Weight: 93.8946 kg

DRUGS (3)
  1. DOXAZOSIN MESYLATE [Concomitant]
  2. AMARYL [Concomitant]
  3. TEKTURNA [Suspect]
     Indication: HYPERTENSION
     Dosage: 150MG ONE DAILY PO
     Route: 048
     Dates: start: 20080101, end: 20120124

REACTIONS (4)
  - OPTIC ISCHAEMIC NEUROPATHY [None]
  - ANIMAL SCRATCH [None]
  - EYE INJURY [None]
  - DRUG INTERACTION [None]
